FAERS Safety Report 7362679-4 (Version None)
Quarter: 2011Q1

REPORT INFORMATION
  Report Type: 
  Country: None (occurrence: None)
  Receive Date: 20110321
  Receipt Date: 20110309
  Transmission Date: 20110831
  Serious: Yes (Hospitalization)
  Sender: FDA-Public Use
  Company Number: 184044

PATIENT
  Age: 56 Year
  Sex: Female
  Weight: 99 kg

DRUGS (6)
  1. PREDNISONE [Concomitant]
     Indication: ASTHMA
  2. AVONEX [Suspect]
     Route: 030
     Dates: start: 20030101, end: 20040801
  3. VENTOLIN [Concomitant]
     Indication: ASTHMA
  4. AVONEX [Suspect]
     Indication: MULTIPLE SCLEROSIS
     Route: 030
     Dates: start: 19960101, end: 20031001
  5. AVONEX [Suspect]
     Route: 030
     Dates: start: 20031023, end: 20030101
  6. AVONEX [Suspect]
     Route: 030
     Dates: start: 20040901

REACTIONS (15)
  - COMPARTMENT SYNDROME [None]
  - BONE FRAGMENTATION [None]
  - POSTOPERATIVE THROMBOSIS [None]
  - POST PROCEDURAL HAEMORRHAGE [None]
  - ROTATOR CUFF SYNDROME [None]
  - ROAD TRAFFIC ACCIDENT [None]
  - HEPARIN-INDUCED THROMBOCYTOPENIA [None]
  - DYSPNOEA [None]
  - THROMBOSIS [None]
  - MENISCUS LESION [None]
  - HYPOAESTHESIA [None]
  - HAEMOGLOBIN DECREASED [None]
  - TRAUMATIC HAEMATOMA [None]
  - PARAESTHESIA [None]
  - INFLUENZA LIKE ILLNESS [None]
